FAERS Safety Report 6271500-7 (Version None)
Quarter: 2009Q3

REPORT INFORMATION
  Report Type: 
  Country: None (occurrence: None)
  Receive Date: 20090717
  Receipt Date: 20090707
  Transmission Date: 20100115
  Serious: Yes (Other)
  Sender: FDA-Public Use
  Company Number: PHHY2009BR27857

PATIENT
  Age: 18 Year
  Sex: Female

DRUGS (3)
  1. TRILEPTAL [Suspect]
     Indication: ARRHYTHMIA
     Dosage: 1/2 TABLET FIRST 10 DAYS
     Route: 048
     Dates: start: 20030101, end: 20030101
  2. TRILEPTAL [Suspect]
     Dosage: 1 TABLET DAILY
     Route: 048
     Dates: start: 20030101, end: 20060101
  3. TEGRETOL [Suspect]
     Dosage: 200 MG, 1 TABLET DAILY

REACTIONS (6)
  - LOSS OF CONSCIOUSNESS [None]
  - MALAISE [None]
  - MUSCULOSKELETAL STIFFNESS [None]
  - PAIN [None]
  - SYNCOPE [None]
  - VISUAL IMPAIRMENT [None]
